FAERS Safety Report 10265567 (Version 1)
Quarter: 2014Q2

REPORT INFORMATION
  Report Type: Spontaneous
  Country: US (occurrence: None)
  Receive Date: 20140625
  Receipt Date: 20140625
  Transmission Date: 20141212
  Serious: Yes (Hospitalization)
  Sender: FDA-Public Use
  Company Number: None

PATIENT
  Age: 60 Year
  Sex: Male

DRUGS (3)
  1. ZITHROMAX 500 MG APP [Suspect]
     Indication: CHRONIC OBSTRUCTIVE PULMONARY DISEASE
     Dosage: AZITHROMYCIN 500 MG, QD, INTRAVENOUS
     Route: 042
     Dates: start: 20140612, end: 20140615
  2. WARFARIN [Concomitant]
  3. HEPARIN [Concomitant]

REACTIONS (1)
  - Platelet count decreased [None]
